FAERS Safety Report 5038420-7 (Version None)
Quarter: 2006Q2

REPORT INFORMATION
  Report Type: 
  Country: None (occurrence: None)
  Receive Date: 20060601
  Receipt Date: 20060313
  Transmission Date: 20061013
  Serious: No
  Sender: FDA-Public Use
  Company Number: 2006PV010162

PATIENT
  Age: 63 Year
  Sex: Female

DRUGS (8)
  1. BYETTA [Suspect]
     Indication: DIABETES MELLITUS NON-INSULIN-DEPENDENT
     Dosage: SEE IMAGE
     Route: 058
     Dates: start: 20060129, end: 20060227
  2. BYETTA [Suspect]
     Indication: DIABETES MELLITUS NON-INSULIN-DEPENDENT
     Dosage: SEE IMAGE
     Route: 058
     Dates: start: 20060228
  3. GLUCOPHAGE [Concomitant]
  4. GLUCOVANCE [Concomitant]
  5. ALBUTEROL SPIROS [Concomitant]
  6. REGLAN [Concomitant]
  7. INHALER [Concomitant]
  8. FLEXERIL [Concomitant]

REACTIONS (7)
  - BLOOD GLUCOSE INCREASED [None]
  - DECREASED APPETITE [None]
  - DIARRHOEA [None]
  - DRUG INEFFECTIVE FOR UNAPPROVED INDICATION [None]
  - HERPES ZOSTER [None]
  - TOOTH FRACTURE [None]
  - WEIGHT DECREASED [None]
